FAERS Safety Report 15384565 (Version 6)
Quarter: 2019Q1

REPORT INFORMATION
  Report Type: Spontaneous
  Country: US (occurrence: US)
  Receive Date: 20180914
  Receipt Date: 20190321
  Transmission Date: 20190417
  Serious: No
  Sender: FDA-Public Use
  Company Number: US-ASTRAZENECA-2018SF08701

PATIENT
  Age: 32401 Day
  Sex: Male
  Weight: 75.3 kg

DRUGS (4)
  1. BYETTA [Suspect]
     Active Substance: EXENATIDE
     Dosage: UNKNOWN
     Route: 065
  2. BYDUREON BCISE [Suspect]
     Active Substance: EXENATIDE
     Indication: TYPE 2 DIABETES MELLITUS
     Dosage: 2.0MG UNKNOWN
     Route: 058
     Dates: start: 201810, end: 201810
  3. BYDUREON [Suspect]
     Active Substance: EXENATIDE
     Route: 058
     Dates: start: 2018
  4. GLIMEPIRIDE+METFORMIN [Concomitant]
     Dosage: METFORMIN 1000 MG AND GLIMEPIRIDE 1 MG

REACTIONS (14)
  - Asthenia [Unknown]
  - Blood glucose increased [Unknown]
  - Heart rate increased [Unknown]
  - Blood potassium increased [Unknown]
  - Constipation [Unknown]
  - Diarrhoea [Unknown]
  - Dyspnoea [Unknown]
  - Blood glucose decreased [Unknown]
  - Product dose omission [Unknown]
  - Therapy cessation [Unknown]
  - Device issue [Unknown]
  - Fatigue [Unknown]
  - Malaise [Unknown]
  - Weight decreased [Unknown]

NARRATIVE: CASE EVENT DATE: 20190219
